FAERS Safety Report 7798225-0 (Version None)
Quarter: 2011Q4

REPORT INFORMATION
  Report Type: 
  Country: None (occurrence: None)
  Receive Date: 20111005
  Receipt Date: 20110927
  Transmission Date: 20120403
  Serious: No
  Sender: FDA-Public Use
  Company Number: JP-JNJFOC-20110911622

PATIENT
  Sex: Female

DRUGS (4)
  1. BIO-THREE [Concomitant]
     Route: 048
     Dates: start: 20110907, end: 20110907
  2. LOXONIN [Suspect]
     Indication: PAIN
     Route: 048
     Dates: start: 20110907, end: 20110907
  3. LEVOFLOXACIN [Suspect]
     Indication: PRODUCT USED FOR UNKNOWN INDICATION
     Route: 048
     Dates: start: 20110907, end: 20110907
  4. MUCOSTA [Concomitant]
     Route: 048
     Dates: start: 20110907, end: 20110907

REACTIONS (1)
  - CONJUNCTIVAL OEDEMA [None]
